FAERS Safety Report 6419927-4 (Version None)
Quarter: 2009Q4

REPORT INFORMATION
  Report Type: 
  Country: None (occurrence: None)
  Receive Date: 20091029
  Receipt Date: 20091019
  Transmission Date: 20100525
  Serious: Yes (Other)
  Sender: FDA-Public Use
  Company Number: US-JNJFOC-20090904396

PATIENT
  Sex: Male
  Weight: 97.52 kg

DRUGS (7)
  1. PREZISTA [Suspect]
     Indication: HIV INFECTION
     Route: 048
  2. RITONAVIR [Suspect]
     Indication: HIV INFECTION
     Route: 065
  3. HYDROCHLOROTHIAZIDE [Concomitant]
     Indication: HYPERTENSION
  4. TRUVADA [Concomitant]
     Indication: HIV INFECTION
     Route: 065
  5. LEXAPRO [Concomitant]
     Indication: DEPRESSION
  6. TRAMADOL HCL [Concomitant]
     Indication: PAIN
  7. PEPCID [Concomitant]
     Indication: GASTROOESOPHAGEAL REFLUX DISEASE

REACTIONS (1)
  - NEUTROPENIA [None]
